FAERS Safety Report 4802841-5 (Version None)
Quarter: 2005Q4

REPORT INFORMATION
  Report Type: 
  Country: None (occurrence: None)
  Receive Date: 20051018
  Receipt Date: 20050922
  Transmission Date: 20060501
  Serious: Yes (Life-Threatening, Hospitalization, Other)
  Sender: FDA-Public Use
  Company Number: EWC050945774

PATIENT
  Age: 56 Year
  Sex: Male

DRUGS (3)
  1. ZYPREXA [Suspect]
     Indication: BIPOLAR I DISORDER
     Dosage: 460 MG
     Dates: start: 20050909, end: 20050909
  2. PROZAC [Suspect]
     Indication: BIPOLAR I DISORDER
  3. ALPRAZOLAM [Concomitant]

REACTIONS (9)
  - ALCOHOL POISONING [None]
  - BRAIN SCAN ABNORMAL [None]
  - CEREBRAL ATROPHY [None]
  - COMA [None]
  - DEPRESSION [None]
  - GRAND MAL CONVULSION [None]
  - SOPOR [None]
  - SUICIDAL IDEATION [None]
  - SUICIDE ATTEMPT [None]
